FAERS Safety Report 8558339-4 (Version None)
Quarter: 2012Q3

REPORT INFORMATION
  Report Type: 
  Country: None (occurrence: None)
  Receive Date: 20120801
  Receipt Date: 20120702
  Transmission Date: 20120928
  Serious: Yes (Life-Threatening, Hospitalization, Other)
  Sender: FDA-Public Use
  Company Number: CA-MSD-2011SP036291

PATIENT
  Age: 43 Year
  Sex: Male
  Weight: 162.8 kg

DRUGS (1)
  1. POSACONAZOLE [Suspect]
     Indication: PROPHYLAXIS
     Dosage: 300 MG, QD
     Route: 048
     Dates: start: 20110712, end: 20110803

REACTIONS (2)
  - HEPATIC ENZYME INCREASED [None]
  - THROMBOTIC THROMBOCYTOPENIC PURPURA [None]
